FAERS Safety Report 21406531 (Version 1)
Quarter: 2022Q4

REPORT INFORMATION
  Report Type: Spontaneous
  Country: PL (occurrence: PL)
  Receive Date: 20221004
  Receipt Date: 20221004
  Transmission Date: 20230112
  Serious: Yes (Other)
  Sender: FDA-Public Use
  Company Number: PL-Techdow-2022Techdow000065

PATIENT
  Age: 34 Year
  Sex: Female

DRUGS (1)
  1. HEPARIN SODIUM [Suspect]
     Active Substance: HEPARIN SODIUM
     Indication: Pulmonary embolism

REACTIONS (7)
  - Cardiac arrest [Recovered/Resolved]
  - Sinus tachycardia [Unknown]
  - Uterine atony [Unknown]
  - Hypocalcaemia [Unknown]
  - Haemorrhage [Unknown]
  - Acidosis [Unknown]
  - Blood lactic acid increased [Unknown]
